FAERS Safety Report 20702035 (Version 1)
Quarter: 2022Q2

REPORT INFORMATION
  Report Type: Spontaneous
  Country: US (occurrence: None)
  Receive Date: 20220412
  Receipt Date: 20220412
  Transmission Date: 20220721
  Serious: No
  Sender: FDA-Public Use
  Company Number: None

PATIENT
  Age: 5 Year
  Sex: Male

DRUGS (1)
  1. NEUPOGEN [Suspect]
     Active Substance: FILGRASTIM
     Indication: Product used for unknown indication
     Dosage: OTHER STRENGTH : 300MG/ML;?
     Route: 058
     Dates: start: 20191210

REACTIONS (3)
  - Pyrexia [None]
  - Rash [None]
  - Viral infection [None]

NARRATIVE: CASE EVENT DATE: 20220331
